FAERS Safety Report 6162631-0 (Version None)
Quarter: 2009Q2

REPORT INFORMATION
  Report Type: 
  Country: None (occurrence: None)
  Receive Date: 20090417
  Receipt Date: 20090402
  Transmission Date: 20091009
  Serious: Yes (Life-Threatening, Hospitalization)
  Sender: FDA-Public Use
  Company Number: 2009AL002165

PATIENT
  Age: 69 Year
  Sex: Female

DRUGS (9)
  1. DICLOFENAC SODIUM [Suspect]
     Indication: SCIATICA
     Dosage: 75 MG;QD;PO
     Route: 048
     Dates: start: 20070801, end: 20080814
  2. LEVODOPA BENSERAZIDE [Concomitant]
  3. HYDROCHLO [Concomitant]
  4. PRAMIPEXOLE DIHYDROCHLORIDE [Concomitant]
  5. AMANTADINE HCL [Concomitant]
  6. MIRTAZAPINE [Concomitant]
  7. RAMIPRIL [Concomitant]
  8. BISOPROLOL FUMARATE [Concomitant]
  9. SPIRONOLACTONE [Concomitant]

REACTIONS (2)
  - DUODENAL ULCER PERFORATION [None]
  - POSTOPERATIVE WOUND COMPLICATION [None]
